FAERS Safety Report 10365843 (Version 4)
Quarter: 2015Q1

REPORT INFORMATION
  Report Type: Report from Study
  Country: US (occurrence: US)
  Receive Date: 20140806
  Receipt Date: 20150225
  Transmission Date: 20150720
  Serious: Yes (Other)
  Sender: FDA-Public Use
  Company Number: US-SA-2014SA104184

PATIENT
  Age: 39 Year
  Sex: Female

DRUGS (2)
  1. AUBAGIO [Suspect]
     Active Substance: TERIFLUNOMIDE
     Indication: MULTIPLE SCLEROSIS
     Route: 048
     Dates: start: 20131025, end: 20150202
  2. ESTROGEN NOS [Concomitant]
     Active Substance: ESTROGENS
     Dosage: PRIOR TO BED TIME

REACTIONS (7)
  - Myalgia [Unknown]
  - Nausea [Unknown]
  - Spinal column injury [Unknown]
  - Road traffic accident [Unknown]
  - Influenza [Unknown]
  - Seizure [Unknown]
  - Malaise [Unknown]

NARRATIVE: CASE EVENT DATE: 201406
